FAERS Safety Report 7605439-9 (Version None)
Quarter: 2011Q3

REPORT INFORMATION
  Report Type: 
  Country: None (occurrence: None)
  Receive Date: 20110705
  Receipt Date: 20110617
  Transmission Date: 20111222
  Serious: Yes (Life-Threatening, Hospitalization)
  Sender: FDA-Public Use
  Company Number: TCI2011A03601

PATIENT
  Age: 70 Year
  Sex: Male

DRUGS (7)
  1. AMARYL [Concomitant]
  2. SENNOSIDE (SENNOSIDE A+B CALCIUM) [Concomitant]
  3. LIPITOR (ATORVASTATIN CALIUM) [Concomitant]
  4. METFORMIN HYDROCHLORIDE [Concomitant]
  5. INFLUENZA VIRUS VACCINE POLYBALENT [Concomitant]
  6. ACTOS [Suspect]
     Indication: DIABETES MELLITUS
     Dosage: 15 MG (15 MG, 1 IN 1 D), PER ORAL
     Route: 048
     Dates: start: 20100531, end: 20110617
  7. DEPAS (ETIZOLAM) [Concomitant]

REACTIONS (2)
  - HAEMATURIA [None]
  - BLADDER CANCER [None]
